FAERS Safety Report 8100858-9 (Version None)
Quarter: 2012Q1

REPORT INFORMATION
  Report Type: 
  Country: None (occurrence: None)
  Receive Date: 20120129
  Receipt Date: 20110909
  Transmission Date: 20120608
  Serious: No
  Sender: FDA-Public Use
  Company Number: US-ABBOTT-11P-163-0853012-00

PATIENT
  Sex: Male

DRUGS (6)
  1. IRON [Concomitant]
     Indication: MINERAL SUPPLEMENTATION
  2. LYRICA [Concomitant]
     Indication: PAIN
  3. MULTI-VITAMINS [Concomitant]
     Indication: VITAMIN SUPPLEMENTATION
  4. MERCAPTOPURINE [Concomitant]
     Indication: CROHN'S DISEASE
  5. HUMIRA [Suspect]
     Indication: CROHN'S DISEASE
     Dates: start: 20110820
  6. FOLIC ACID [Concomitant]
     Indication: CROHN'S DISEASE

REACTIONS (1)
  - DIARRHOEA [None]
